FAERS Safety Report 6734661-9 (Version None)
Quarter: 2010Q2

REPORT INFORMATION
  Report Type: 
  Country: None (occurrence: None)
  Receive Date: 20100519
  Receipt Date: 20100519
  Transmission Date: 20101027
  Serious: No
  Sender: FDA-Public Use
  Company Number: None

PATIENT
  Sex: Female
  Weight: 40.8237 kg

DRUGS (1)
  1. PAROXETINE HCL [Suspect]
     Dosage: 20 MG ONCE DAILY ORAL
     Route: 048

REACTIONS (1)
  - SPINAL FRACTURE [None]
